FAERS Safety Report 10592685 (Version 1)
Quarter: 2014Q4

REPORT INFORMATION
  Report Type: Spontaneous
  Country: US (occurrence: None)
  Receive Date: 20141117
  Receipt Date: 20141117
  Transmission Date: 20150529
  Serious: Yes (Other)
  Sender: FDA-Public Use
  Company Number: 2014RD000058

PATIENT
  Age: 49 Year
  Sex: Male

DRUGS (1)
  1. IPRATROPIUM BROMIDE AND ALBUTEROL SULFATE INHALATION SOLUTION 0.5 MG/3MG PER 3 ML [Suspect]
     Active Substance: ALBUTEROL SULFATE\IPRATROPIUM BROMIDE
     Indication: RESPIRATORY DISTRESS
     Route: 055

REACTIONS (7)
  - Productive cough [None]
  - Pyrexia [None]
  - Lactic acidosis [None]
  - Cardiomegaly [None]
  - Tachypnoea [None]
  - Chronic obstructive pulmonary disease [None]
  - Muscle fatigue [None]
